FAERS Safety Report 9311334 (Version 2)
Quarter: 2013Q4

REPORT INFORMATION
  Report Type: Spontaneous
  Country: US (occurrence: US)
  Receive Date: 20130528
  Receipt Date: 20131106
  Transmission Date: 20140711
  Serious: Yes (Other)
  Sender: FDA-Public Use
  Company Number: US-BAYER-2013-065133

PATIENT
  Age: 92 Year
  Sex: Female
  Weight: 68.93 kg

DRUGS (23)
  1. BAYER ASPIRIN REGIMEN ADULT LOW STRENGTH [Suspect]
     Indication: ATRIAL FIBRILLATION
     Dosage: 1 DF, QD
     Route: 048
  2. BAYER ASPIRIN REGIMEN ADULT LOW STRENGTH [Suspect]
     Indication: ATRIAL FIBRILLATION
     Dosage: 2 DF, UNK
     Route: 048
  3. TIKOSYN [Concomitant]
  4. VITAMIN B COMPLEX [VITAMIN-B-KOMPLEX STANDARD] [Concomitant]
  5. VITAMIN C [Concomitant]
  6. VITAMIN D [Concomitant]
  7. PANTOTHENIC ACID [Concomitant]
  8. LUTEIN [Concomitant]
  9. POTASSIUM [Concomitant]
  10. MAGNESIUM [Concomitant]
  11. FLAXSEED OIL [Concomitant]
  12. BETA CAROTENE [Concomitant]
  13. BIOTIN [Concomitant]
  14. COQ10 [Concomitant]
  15. VINPOCETINE [Concomitant]
  16. CALCIUM [Concomitant]
  17. VITAMIN K [Concomitant]
  18. LYSINE [Concomitant]
  19. GRAPE SEED [Concomitant]
  20. VITAMIN E [Concomitant]
     Dosage: 400 MG, UNK
  21. ZINC [Concomitant]
  22. COPPER [Concomitant]
  23. SELENIUM [Concomitant]

REACTIONS (3)
  - Foreign body [None]
  - Vaginal haemorrhage [None]
  - Off label use [None]
